FAERS Safety Report 6148275-5 (Version None)
Quarter: 2009Q2

REPORT INFORMATION
  Report Type: 
  Country: None (occurrence: None)
  Receive Date: 20090408
  Receipt Date: 20090331
  Transmission Date: 20091009
  Serious: Yes (Hospitalization)
  Sender: FDA-Public Use
  Company Number: US-ELI_LILLY_AND_COMPANY-US200903007820

PATIENT
  Age: 61 Year
  Sex: Male

DRUGS (11)
  1. HUMALOG [Suspect]
  2. HUMULIN 70/30 [Suspect]
  3. GABAPENTIN [Concomitant]
  4. PRILOSEC [Concomitant]
  5. DIOVAN [Concomitant]
  6. XIFAXAN [Concomitant]
  7. LACTULOSE [Concomitant]
  8. AMBIEN [Concomitant]
     Dosage: UNK, EACH EVENING
  9. SPIRONOLACTONE [Concomitant]
  10. LANTUS [Concomitant]
  11. MULTI-VITAMIN [Concomitant]

REACTIONS (8)
  - BLOOD GLUCOSE FLUCTUATION [None]
  - DRUG PRESCRIBING ERROR [None]
  - FALL [None]
  - MALAISE [None]
  - PAIN [None]
  - RIB FRACTURE [None]
  - THINKING ABNORMAL [None]
  - WRONG DRUG ADMINISTERED [None]
